FAERS Safety Report 9170574 (Version 1)
Quarter: 2013Q1

REPORT INFORMATION
  Report Type: Spontaneous
  Country: US (occurrence: None)
  Receive Date: 20130307
  Receipt Date: 20130307
  Transmission Date: 20140127
  Serious: Yes (Hospitalization)
  Sender: FDA-Public Use
  Company Number: A1012802A

PATIENT
  Age: 58 Year
  Sex: Male

DRUGS (2)
  1. CALCIUM CARBONATE [Suspect]
     Indication: OFF LABEL USE
     Dosage: ORAL
     Route: 048
     Dates: start: 20120113
  2. DIABETES MEDICATION [Concomitant]

REACTIONS (7)
  - Nephrolithiasis [None]
  - Off label use [None]
  - Product quality issue [None]
  - Intentional drug misuse [None]
  - Incorrect dose administered [None]
  - Blood calcium increased [None]
  - Excoriation [None]
